FAERS Safety Report 20509284 (Version 2)
Quarter: 2022Q3

REPORT INFORMATION
  Report Type: Report from Study
  Country: EG (occurrence: EG)
  Receive Date: 20220223
  Receipt Date: 20220725
  Transmission Date: 20221026
  Serious: Yes (Other)
  Sender: FDA-Public Use
  Company Number: EG-NOVARTISPH-NVSC2022EG041236

PATIENT
  Age: 20 Year
  Sex: Male

DRUGS (5)
  1. GILENYA [Suspect]
     Active Substance: FINGOLIMOD HYDROCHLORIDE
     Indication: Multiple sclerosis
     Dosage: 0.5 MG, QD
     Route: 048
     Dates: start: 2020
  2. ASCORBIC ACID\ZINC [Concomitant]
     Active Substance: ASCORBIC ACID\ZINC
     Indication: Immune system disorder
     Dosage: 1 DOSAGE FORM, QD
     Route: 065
     Dates: start: 202201
  3. BONE CARE [Concomitant]
     Active Substance: ATRACTYLODES LANCEA ROOT
     Indication: Supplementation therapy
     Dosage: 1 DOSAGE FORM, QD
     Route: 065
     Dates: start: 2020
  4. ROYAL JELLY [Concomitant]
     Active Substance: ROYAL JELLY
     Indication: Supplementation therapy
     Dosage: 1 DOSAGE FORM, QD (600)
     Route: 065
     Dates: start: 2020
  5. OMEPRAZOLE [Concomitant]
     Active Substance: OMEPRAZOLE
     Indication: Prophylaxis
     Dosage: 1 DOSAGE FORM, QD
     Route: 065
     Dates: start: 2020

REACTIONS (5)
  - Decreased immune responsiveness [Recovered/Resolved]
  - Decreased immune responsiveness [Recovering/Resolving]
  - Neck pain [Not Recovered/Not Resolved]
  - Hepatic enzyme increased [Unknown]
  - Headache [Not Recovered/Not Resolved]

NARRATIVE: CASE EVENT DATE: 20210901
